FAERS Safety Report 17438486 (Version 3)
Quarter: 2020Q1

REPORT INFORMATION
  Report Type: Spontaneous
  Country: FR (occurrence: FR)
  Receive Date: 20200220
  Receipt Date: 20200330
  Transmission Date: 20200409
  Serious: Yes (Disabling)
  Sender: FDA-Public Use
  Company Number: FR-BAUSCH-BL-2020-004624

PATIENT
  Age: 11 Year
  Sex: Male

DRUGS (5)
  1. HYDROCORTANCYL [Suspect]
     Active Substance: PREDNISONE
     Indication: ECZEMA
     Route: 065
  2. PROTOPIC [Suspect]
     Active Substance: TACROLIMUS
     Indication: ECZEMA
     Route: 065
     Dates: start: 2011
  3. PROTOPIC [Suspect]
     Active Substance: TACROLIMUS
     Route: 065
     Dates: start: 2013
  4. MILDISON [Suspect]
     Active Substance: HYDROCORTISONE
     Indication: ECZEMA
     Route: 065
  5. LOCOID [Suspect]
     Active Substance: HYDROCORTISONE BUTYRATE
     Indication: ECZEMA
     Route: 065

REACTIONS (6)
  - Wheelchair user [Recovered/Resolved]
  - Immune system disorder [Unknown]
  - Endocrine disorder [Unknown]
  - Asthma [Unknown]
  - Dysaesthesia [Unknown]
  - Hyperaesthesia [Unknown]

NARRATIVE: CASE EVENT DATE: 2011
